FAERS Safety Report 20924228 (Version 1)
Quarter: 2022Q2

REPORT INFORMATION
  Report Type: Report from Study
  Country: US (occurrence: US)
  Receive Date: 20220607
  Receipt Date: 20220607
  Transmission Date: 20220721
  Serious: Yes (Other)
  Sender: FDA-Public Use
  Company Number: US-CELGENE-USA-20220201383

PATIENT
  Age: 81 Year
  Sex: Male
  Weight: 93.44 kg

DRUGS (3)
  1. REVLIMID [Suspect]
     Active Substance: LENALIDOMIDE
     Indication: Plasma cell myeloma
     Dosage: 5 MILLIGRAM
     Route: 048
     Dates: start: 20210128
  2. REVLIMID [Suspect]
     Active Substance: LENALIDOMIDE
     Dosage: 10 MILLIGRAM
     Route: 048
     Dates: start: 202101
  3. REVLIMID [Suspect]
     Active Substance: LENALIDOMIDE
     Dosage: FREQUENCY: DAILY AT BEDTIME.
     Route: 048
     Dates: start: 20210128

REACTIONS (5)
  - Upper respiratory tract infection [Unknown]
  - Nasopharyngitis [Unknown]
  - Fatigue [Unknown]
  - Muscle spasms [Unknown]
  - Diarrhoea [Unknown]
